FAERS Safety Report 8910174 (Version 2)
Quarter: 2013Q1

REPORT INFORMATION
  Report Type: Spontaneous
  Country: US (occurrence: US)
  Receive Date: 20121114
  Receipt Date: 20130222
  Transmission Date: 20140127
  Serious: No
  Sender: FDA-Public Use
  Company Number: US-ASTRAZENECA-2012SE80969

PATIENT
  Age: 57 Year
  Sex: Male

DRUGS (1)
  1. NEXIUM [Suspect]
     Route: 048

REACTIONS (7)
  - Gastrooesophageal reflux disease [Unknown]
  - Discomfort [Unknown]
  - Nasopharyngitis [Unknown]
  - Adverse event [Unknown]
  - Abdominal discomfort [Unknown]
  - Drug dose omission [Unknown]
  - Intentional drug misuse [Unknown]
